FAERS Safety Report 12371602 (Version 2)
Quarter: 2016Q2

REPORT INFORMATION
  Report Type: Report from Study
  Country: BR (occurrence: BR)
  Receive Date: 20160516
  Receipt Date: 20160603
  Transmission Date: 20160815
  Serious: Yes (Other)
  Sender: FDA-Public Use
  Company Number: PHHY2016BR065970

PATIENT
  Sex: Female
  Weight: 49 kg

DRUGS (2)
  1. CALTRATE 600+D [Concomitant]
     Indication: MINERAL SUPPLEMENTATION
     Dosage: 1 DF, QD (STARTED MORE THAN 5 YEARS AGO)
     Route: 048
  2. LESCOL XL [Suspect]
     Active Substance: FLUVASTATIN SODIUM
     Indication: BLOOD CHOLESTEROL INCREASED
     Dosage: 1 DF, QD (30 TABLETS)
     Route: 048

REACTIONS (3)
  - Cholelithiasis [Recovered/Resolved]
  - Liver function test increased [Unknown]
  - Hypothyroidism [Recovering/Resolving]
